FAERS Safety Report 9352670 (Version 1)
Quarter: 2013Q2

REPORT INFORMATION
  Report Type: Report from Study
  Country: US (occurrence: US)
  Receive Date: 20130618
  Receipt Date: 20130618
  Transmission Date: 20140414
  Serious: Yes (Other)
  Sender: FDA-Public Use
  Company Number: US-ROCHE-1229626

PATIENT
  Age: 66 Year
  Sex: Male

DRUGS (7)
  1. LUCENTIS [Suspect]
     Indication: RETINAL VEIN OCCLUSION
     Dosage: OD
     Route: 050
     Dates: start: 20120910, end: 20130110
  2. LUCENTIS [Suspect]
     Dosage: OS
     Route: 050
     Dates: start: 20120913, end: 20130117
  3. ASPIRIN [Concomitant]
     Route: 048
  4. GLIPIZIDE [Concomitant]
     Indication: DIABETES MELLITUS
     Route: 048
  5. LISINOPRIL [Concomitant]
  6. PAXIL [Concomitant]
  7. OMEGA 3 [Concomitant]

REACTIONS (3)
  - Vision blurred [Not Recovered/Not Resolved]
  - Cataract [Unknown]
  - Glare [Not Recovered/Not Resolved]
